FAERS Safety Report 11222006 (Version 2)
Quarter: 2016Q2

REPORT INFORMATION
  Report Type: Spontaneous
  Country: US (occurrence: US)
  Receive Date: 20150626
  Receipt Date: 20160401
  Transmission Date: 20160815
  Serious: Yes (Other)
  Sender: FDA-Public Use
  Company Number: US-ABBVIE-15P-163-1415631-00

PATIENT
  Age: 33 Year
  Sex: Female

DRUGS (1)
  1. HUMIRA [Suspect]
     Active Substance: ADALIMUMAB
     Indication: PRODUCT USED FOR UNKNOWN INDICATION
     Route: 065

REACTIONS (5)
  - Hysterectomy [Unknown]
  - Gastrectomy [Unknown]
  - Biliary cyst [Unknown]
  - Tonsillar cyst [Unknown]
  - Foot deformity [Unknown]
